FAERS Safety Report 9889596 (Version 2)
Quarter: 2014Q3

REPORT INFORMATION
  Report Type: Spontaneous
  Country: US (occurrence: US)
  Receive Date: 20140211
  Receipt Date: 20140806
  Transmission Date: 20150326
  Serious: Yes (Hospitalization, Other)
  Sender: FDA-Public Use
  Company Number: US-009507513-1402USA005064

PATIENT
  Sex: Female
  Weight: 113.4 kg

DRUGS (1)
  1. NUVARING [Suspect]
     Active Substance: ETHINYL ESTRADIOL\ETONOGESTREL
     Indication: CONTRACEPTION
     Dosage: UNK
     Route: 067
     Dates: start: 20130102, end: 20130427

REACTIONS (6)
  - Pulmonary embolism [Unknown]
  - Hepatic cyst [Unknown]
  - Deep vein thrombosis [Unknown]
  - Syringomyelia [Unknown]
  - Limb injury [Unknown]
  - Gastrooesophageal reflux disease [Unknown]

NARRATIVE: CASE EVENT DATE: 201304
